FAERS Safety Report 20720455 (Version 1)
Quarter: 2022Q2

REPORT INFORMATION
  Report Type: Spontaneous
  Country: US (occurrence: US)
  Receive Date: 20220418
  Receipt Date: 20220418
  Transmission Date: 20220720
  Serious: No
  Sender: FDA-Public Use
  Company Number: US-SEBELA IRELAND LIMITED-2021SEB00135

PATIENT
  Sex: Female

DRUGS (7)
  1. IMURAN [Suspect]
     Active Substance: AZATHIOPRINE
  2. RITUXAN [Concomitant]
     Active Substance: RITUXIMAB
  3. CELLCEPT [Concomitant]
     Active Substance: MYCOPHENOLATE MOFETIL
  4. VITAMIN D [Concomitant]
     Active Substance: VITAMIN D NOS
  5. PRILOSEC [Concomitant]
     Active Substance: OMEPRAZOLE MAGNESIUM
  6. METHOTREXATE [Concomitant]
     Active Substance: METHOTREXATE
  7. HYDROXYCHLOROQUINE [Concomitant]
     Active Substance: HYDROXYCHLOROQUINE

REACTIONS (1)
  - Gastrointestinal toxicity [Unknown]
